FAERS Safety Report 5281841-8 (Version None)
Quarter: 2007Q1

REPORT INFORMATION
  Report Type: 
  Country: None (occurrence: None)
  Receive Date: 20070330
  Receipt Date: 20070319
  Transmission Date: 20070707
  Serious: Yes (Hospitalization, Other)
  Sender: FDA-Public Use
  Company Number: CA-ELI_LILLY_AND_COMPANY-CA200702004031

PATIENT
  Age: 69 Year
  Sex: Female

DRUGS (5)
  1. FORTEO [Suspect]
     Indication: OSTEOPOROSIS
     Dosage: 20 UG, DAILY (1/D)
     Route: 058
     Dates: start: 20060821, end: 20070201
  2. ENBREL [Concomitant]
     Dosage: UNK, UNK
  3. DIFLUNISAL [Concomitant]
     Dosage: UNK, UNK
  4. SYNTHROID [Concomitant]
     Dosage: UNK, UNK
  5. LOSEC [Concomitant]
     Dosage: UNK, UNK

REACTIONS (6)
  - ABNORMAL FAECES [None]
  - DECREASED APPETITE [None]
  - DIVERTICULUM [None]
  - GASTROINTESTINAL FISTULA [None]
  - NAUSEA [None]
  - URINARY TRACT INFECTION [None]
